FAERS Safety Report 6823832-9 (Version None)
Quarter: 2010Q3

REPORT INFORMATION
  Report Type: 
  Country: None (occurrence: None)
  Receive Date: 20100708
  Receipt Date: 20060916
  Transmission Date: 20110219
  Serious: No
  Sender: FDA-Public Use
  Company Number: US-PFIZER INC-2006113734

PATIENT
  Age: 53 Year
  Sex: Female
  Weight: 51.71 kg

DRUGS (8)
  1. CHANTIX [Suspect]
     Indication: EX-TOBACCO USER
     Dates: start: 20060901
  2. DILTIAZEM [Concomitant]
  3. LISINOPRIL [Concomitant]
  4. EFFEXOR [Concomitant]
  5. CLONIDINE [Concomitant]
  6. PREVACID [Concomitant]
  7. CLONAZEPAM [Concomitant]
  8. TRAZODONE [Concomitant]

REACTIONS (2)
  - PARANOIA [None]
  - THINKING ABNORMAL [None]
